FAERS Safety Report 13832287 (Version 1)
Quarter: 2017Q3

REPORT INFORMATION
  Report Type: Spontaneous
  Country: US (occurrence: US)
  Receive Date: 20170803
  Receipt Date: 20170803
  Transmission Date: 20171127
  Serious: Yes (Other)
  Sender: FDA-Public Use
  Company Number: US-ROCHE-687501

PATIENT
  Age: 77 Year
  Sex: Female
  Weight: 67.1 kg

DRUGS (3)
  1. PREDNISONE. [Suspect]
     Active Substance: PREDNISONE
     Route: 065
  2. BONIVA [Suspect]
     Active Substance: IBANDRONATE SODIUM
     Indication: OSTEOPOROSIS
     Route: 048
     Dates: start: 20090815, end: 20090915
  3. PREDNISONE. [Suspect]
     Active Substance: PREDNISONE
     Indication: PAIN
     Route: 065

REACTIONS (7)
  - Bronchitis [Unknown]
  - Pain [Unknown]
  - Back pain [Unknown]
  - Pneumonia [Unknown]
  - General physical health deterioration [Unknown]
  - Musculoskeletal pain [Unknown]
  - Myalgia [Unknown]

NARRATIVE: CASE EVENT DATE: 20090815
